FAERS Safety Report 15774355 (Version 1)
Quarter: 2018Q4

REPORT INFORMATION
  Report Type: Spontaneous
  Country: KR (occurrence: KR)
  Receive Date: 20181229
  Receipt Date: 20181229
  Transmission Date: 20190205
  Serious: Yes (Life-Threatening, Hospitalization, Other)
  Sender: FDA-Public Use
  Company Number: KR-ACCORD-097939

PATIENT
  Age: 5 Year
  Sex: Female

DRUGS (8)
  1. MYCOPHENOLIC ACID. [Suspect]
     Active Substance: MYCOPHENOLIC ACID
     Indication: IMMUNOSUPPRESSION
     Dosage: 600 MG/M2/DOSE TWICE DAILY
  2. TACROLIMUS. [Suspect]
     Active Substance: TACROLIMUS
     Indication: IMMUNOSUPPRESSION
     Dosage: 0.3 MG/KG/DAY, DOSE REDUCED
  3. METHYLPREDNISOLONE. [Suspect]
     Active Substance: METHYLPREDNISOLONE
     Indication: IMMUNOSUPPRESSION
     Dosage: EVERY 8 HOURS FOR 1 DAY -1 MG/KG/DAY FOR 1 MONTH
  4. RITUXIMAB. [Concomitant]
     Active Substance: RITUXIMAB
     Indication: EPSTEIN-BARR VIRUS ASSOCIATED LYMPHOPROLIFERATIVE DISORDER
  5. VINCRISTINE [Concomitant]
     Active Substance: VINCRISTINE
     Indication: EPSTEIN-BARR VIRUS ASSOCIATED LYMPHOPROLIFERATIVE DISORDER
  6. PREDNISONE. [Suspect]
     Active Substance: PREDNISONE
     Indication: IMMUNOSUPPRESSION
  7. CYCLOPHOSPHAMIDE/CYCLOPHOSPHAMIDE MONOHYDRATE [Concomitant]
     Indication: EPSTEIN-BARR VIRUS ASSOCIATED LYMPHOPROLIFERATIVE DISORDER
  8. DOXORUBICIN [Concomitant]
     Active Substance: DOXORUBICIN
     Indication: EPSTEIN-BARR VIRUS ASSOCIATED LYMPHOPROLIFERATIVE DISORDER

REACTIONS (5)
  - Cytopenia [Unknown]
  - Epstein-Barr virus associated lymphoproliferative disorder [Unknown]
  - Acute kidney injury [Recovering/Resolving]
  - Polyomavirus-associated nephropathy [Unknown]
  - Posterior reversible encephalopathy syndrome [Unknown]
